FAERS Safety Report 9850704 (Version 1)
Quarter: 2013Q4

REPORT INFORMATION
  Report Type: Spontaneous
  Country: US (occurrence: None)
  Receive Date: 20131226
  Receipt Date: 20131226
  Transmission Date: 20140711
  Serious: Yes (Life-Threatening, Hospitalization, Other)
  Sender: FDA-Public Use
  Company Number: PHEH2012US012812

PATIENT
  Age: 74 Year
  Sex: Male
  Weight: 71.7 kg

DRUGS (1)
  1. AFINITOR [Suspect]
     Indication: RENAL CELL CARCINOMA
     Route: 048
     Dates: start: 20120514, end: 20120621

REACTIONS (4)
  - Gastrointestinal haemorrhage [None]
  - Neoplasm [None]
  - Malignant neoplasm progression [None]
  - Metastases to adrenals [None]
